FAERS Safety Report 11522512 (Version 1)
Quarter: 2015Q3

REPORT INFORMATION
  Report Type: Spontaneous
  Country: US (occurrence: US)
  Receive Date: 20150918
  Receipt Date: 20150918
  Transmission Date: 20151125
  Serious: No
  Sender: FDA-Public Use
  Company Number: US-ROCHE-735550

PATIENT
  Age: 51 Year
  Sex: Male

DRUGS (3)
  1. RIBAVIRIN. [Suspect]
     Active Substance: RIBAVIRIN
     Indication: HEPATITIS C
     Dosage: IN DIVIDED DOSES
     Route: 065
     Dates: start: 20100714, end: 20101019
  2. PEGASYS [Suspect]
     Active Substance: PEGINTERFERON ALFA-2A
     Dosage: DOSE REDUCED
     Route: 065
     Dates: start: 20101005, end: 20101019
  3. PEGASYS [Suspect]
     Active Substance: PEGINTERFERON ALFA-2A
     Indication: HEPATITIS C
     Dosage: FORM: PRE-FILLED SYRINGE
     Route: 065

REACTIONS (1)
  - White blood cell count decreased [Unknown]

NARRATIVE: CASE EVENT DATE: 20101005
